FAERS Safety Report 6702357-5 (Version None)
Quarter: 2010Q2

REPORT INFORMATION
  Report Type: 
  Country: None (occurrence: None)
  Receive Date: 20100429
  Receipt Date: 20100415
  Transmission Date: 20101027
  Serious: Yes (Hospitalization)
  Sender: FDA-Public Use
  Company Number: MX-ELI_LILLY_AND_COMPANY-MX201004004215

PATIENT
  Age: 44 Year
  Sex: Female

DRUGS (2)
  1. FORTEO [Suspect]
     Indication: VITAMIN D DEFICIENCY
     Dosage: UNK, UNKNOWN
     Route: 058
     Dates: start: 20091201
  2. VITAMIN D [Concomitant]

REACTIONS (2)
  - HIP SURGERY [None]
  - OFF LABEL USE [None]
